FAERS Safety Report 20078981 (Version 1)
Quarter: 2021Q4

REPORT INFORMATION
  Report Type: Spontaneous
  Country: US (occurrence: US)
  Receive Date: 20211117
  Receipt Date: 20211117
  Transmission Date: 20220303
  Serious: No
  Sender: FDA-Public Use
  Company Number: US-ALLERGAN-2103316US

PATIENT
  Sex: Female

DRUGS (1)
  1. COMBIGAN [Suspect]
     Active Substance: BRIMONIDINE TARTRATE\TIMOLOL MALEATE
     Indication: Pigmentary glaucoma
     Dosage: 2 GTT, BID
     Route: 047
     Dates: end: 20201224

REACTIONS (10)
  - Eye swelling [Recovered/Resolved]
  - Eczema eyelids [Recovered/Resolved]
  - Eyelid skin dryness [Recovered/Resolved]
  - Off label use [Unknown]
  - Visual impairment [Recovered/Resolved]
  - Dermatitis contact [Recovered/Resolved]
  - Taste disorder [Recovered/Resolved]
  - Eye irritation [Recovered/Resolved]
  - Eye pruritus [Recovered/Resolved]
  - Eye pain [Recovered/Resolved]
